FAERS Safety Report 6427311-2 (Version None)
Quarter: 2009Q4

REPORT INFORMATION
  Report Type: 
  Country: None (occurrence: None)
  Receive Date: 20091104
  Receipt Date: 20091026
  Transmission Date: 20100525
  Serious: Yes (Hospitalization)
  Sender: FDA-Public Use
  Company Number: B0601532A

PATIENT
  Age: 78 Year
  Sex: Female

DRUGS (3)
  1. ARIXTRA [Suspect]
     Indication: THROMBOSIS PROPHYLAXIS
     Dosage: 2.5MG PER DAY
     Route: 065
  2. ANTIHYPERTENSIVE (UNSPECIFIED) [Concomitant]
     Route: 065
  3. DIABETES MEDICATION [Concomitant]
     Route: 065

REACTIONS (2)
  - EXTRADURAL HAEMATOMA [None]
  - PERONEAL NERVE PALSY [None]
